FAERS Safety Report 9892106 (Version 1)
Quarter: 2014Q1

REPORT INFORMATION
  Report Type: Spontaneous
  Country: GB (occurrence: GB)
  Receive Date: 20140212
  Receipt Date: 20140212
  Transmission Date: 20141002
  Serious: Yes (Other)
  Sender: FDA-Public Use
  Company Number: GB-GLAXOSMITHKLINE-B0967372A

PATIENT
  Age: 31 Year
  Sex: Female

DRUGS (2)
  1. LAMOTRIGINE [Suspect]
     Indication: EPILEPSY
     Dosage: 200MG PER DAY
     Route: 048
  2. INTERFERON BETA [Concomitant]
     Indication: MULTIPLE SCLEROSIS

REACTIONS (2)
  - Alopecia [Not Recovered/Not Resolved]
  - Trichorrhexis [Unknown]
